FAERS Safety Report 21253982 (Version 2)
Quarter: 2022Q3

REPORT INFORMATION
  Report Type: Report from Study
  Country: US (occurrence: US)
  Receive Date: 20220825
  Receipt Date: 20220927
  Transmission Date: 20221026
  Serious: Yes (Other)
  Sender: FDA-Public Use
  Company Number: US-HBP-2022US027260

PATIENT
  Sex: Male

DRUGS (2)
  1. TRUSELTIQ [Suspect]
     Active Substance: INFIGRATINIB
     Indication: Brain neoplasm malignant
     Dosage: 125 MILLIGRAM, DAILY FOR 21 DAYS
     Route: 048
     Dates: start: 20220401, end: 2022
  2. TRUSELTIQ [Suspect]
     Active Substance: INFIGRATINIB
     Dosage: 125 MILLIGRAM, DAILY FOR 21 DAYS
     Route: 048
     Dates: start: 20220513

REACTIONS (13)
  - Dehydration [Unknown]
  - Tumour excision [Unknown]
  - Stomatitis haemorrhagic [Unknown]
  - Oral pain [Unknown]
  - Off label use [Unknown]
  - Intentional dose omission [Unknown]
  - Constipation [Unknown]
  - Blood phosphorus abnormal [Unknown]
  - Stomatitis [Unknown]
  - Cheilitis [Unknown]
  - Fatigue [Recovering/Resolving]
  - Nail disorder [Unknown]
  - Onychomadesis [Unknown]
